FAERS Safety Report 4455402-4 (Version None)
Quarter: 2004Q3

REPORT INFORMATION
  Report Type: 
  Country: None (occurrence: None)
  Receive Date: 20040830
  Receipt Date: 20040401
  Transmission Date: 20050211
  Serious: No
  Sender: FDA-Public Use
  Company Number: 203498

PATIENT
  Sex: Female

DRUGS (1)
  1. XOLAIR [Suspect]
     Dosage: 150 MG,Q4W

REACTIONS (2)
  - ALOPECIA [None]
  - SEBORRHOEIC DERMATITIS [None]
